FAERS Safety Report 5896787-1 (Version None)
Quarter: 2008Q3

REPORT INFORMATION
  Report Type: 
  Country: None (occurrence: None)
  Receive Date: 20080924
  Receipt Date: 20080212
  Transmission Date: 20090109
  Serious: Yes (Other)
  Sender: FDA-Public Use
  Company Number: US-ASTRAZENECA-2007UW26480

PATIENT
  Age: 53 Year
  Sex: Female

DRUGS (2)
  1. SEROQUEL [Suspect]
     Indication: SLEEP DISORDER
     Dosage: 100MG - 400MG
     Route: 048
     Dates: start: 20040101, end: 20051201
  2. SEROQUEL [Suspect]
     Indication: STRESS
     Dosage: 100MG - 400MG
     Route: 048
     Dates: start: 20040101, end: 20051201

REACTIONS (1)
  - DIABETIC KETOACIDOSIS [None]
